FAERS Safety Report 14346189 (Version 10)
Quarter: 2019Q2

REPORT INFORMATION
  Report Type: Spontaneous
  Country: US (occurrence: US)
  Receive Date: 20180103
  Receipt Date: 20190517
  Transmission Date: 20190711
  Serious: Yes (Hospitalization, Other)
  Sender: FDA-Public Use
  Company Number: US-PFIZER INC-2018000832

PATIENT
  Age: 58 Year
  Sex: Male
  Weight: 80 kg

DRUGS (8)
  1. AMLODIPINE [Concomitant]
     Active Substance: AMLODIPINE BESYLATE
     Dosage: UNK
     Dates: start: 2009
  2. COMPAZINE [Concomitant]
     Active Substance: PROCHLORPERAZINE MALEATE
     Dosage: UNK
  3. LANREOTIDE [Concomitant]
     Active Substance: LANREOTIDE
     Dosage: UNK
     Dates: start: 201709, end: 201903
  4. PRILOSEC [Concomitant]
     Active Substance: OMEPRAZOLE MAGNESIUM
     Dosage: UNK
     Dates: start: 201708
  5. LIVER DETOX + SUPPORT [Concomitant]
     Dosage: UNK
  6. VITAMIN D [Concomitant]
     Active Substance: VITAMIN D NOS
     Dosage: UNK
  7. ZOFRAN [Concomitant]
     Active Substance: ONDANSETRON HYDROCHLORIDE
     Dosage: UNK, AS NEEDED
     Dates: start: 201708
  8. SUTENT [Suspect]
     Active Substance: SUNITINIB MALATE
     Indication: PANCREATIC NEUROENDOCRINE TUMOUR METASTATIC
     Dosage: 37.5 MG, DAILY
     Dates: start: 201709

REACTIONS (21)
  - Pain in extremity [Recovered/Resolved]
  - Restlessness [Recovered/Resolved]
  - Weight decreased [Unknown]
  - Dry mouth [Unknown]
  - Fatigue [Not Recovered/Not Resolved]
  - Blood pressure increased [Recovered/Resolved]
  - Product dose omission [Unknown]
  - Diarrhoea [Unknown]
  - Muscle tightness [Not Recovered/Not Resolved]
  - Abdominal pain upper [Unknown]
  - Eructation [Unknown]
  - Epistaxis [Recovering/Resolving]
  - Scab [Not Recovered/Not Resolved]
  - Influenza [Recovered/Resolved]
  - Feeding disorder [Unknown]
  - Nasal discomfort [Unknown]
  - Asthenia [Recovered/Resolved]
  - Abdominal discomfort [Not Recovered/Not Resolved]
  - Sinusitis [Not Recovered/Not Resolved]
  - Nausea [Unknown]
  - Productive cough [Not Recovered/Not Resolved]

NARRATIVE: CASE EVENT DATE: 201712
